FAERS Safety Report 13598693 (Version 1)
Quarter: 2017Q2

REPORT INFORMATION
  Report Type: Spontaneous
  Country: US (occurrence: US)
  Receive Date: 20170531
  Receipt Date: 20170531
  Transmission Date: 20170830
  Serious: Yes (Hospitalization)
  Sender: FDA-Public Use
  Company Number: None

PATIENT
  Age: 59 Year
  Sex: Male
  Weight: 65.6 kg

DRUGS (11)
  1. GLIPIZIDE. [Concomitant]
     Active Substance: GLIPIZIDE
  2. AMLODIPINE [Concomitant]
     Active Substance: AMLODIPINE BESYLATE
  3. SENSIPAR [Concomitant]
     Active Substance: CINACALCET HYDROCHLORIDE
  4. SERTRALINE [Concomitant]
     Active Substance: SERTRALINE HYDROCHLORIDE
  5. KAYEXALATE [Concomitant]
     Active Substance: SODIUM POLYSTYRENE SULFONATE
  6. LOSARTAN. [Concomitant]
     Active Substance: LOSARTAN
  7. CARVEDILOL. [Concomitant]
     Active Substance: CARVEDILOL
  8. ONDANSETRON [Concomitant]
     Active Substance: ONDANSETRON
  9. ZEPATIER [Suspect]
     Active Substance: ELBASVIR\GRAZOPREVIR
     Indication: HEPATITIS C
     Route: 048
     Dates: start: 20170131, end: 20170427
  10. CLONIDINE. [Concomitant]
     Active Substance: CLONIDINE
  11. CRESTOR [Concomitant]
     Active Substance: ROSUVASTATIN CALCIUM

REACTIONS (5)
  - Chest pain [None]
  - Blood pressure decreased [None]
  - Somnolence [None]
  - Loss of consciousness [None]
  - Apnoea [None]

NARRATIVE: CASE EVENT DATE: 20170330
